FAERS Safety Report 18591071 (Version 1)
Quarter: 2020Q4

REPORT INFORMATION
  Report Type: Spontaneous
  Country: US (occurrence: US)
  Receive Date: 20201208
  Receipt Date: 20201208
  Transmission Date: 20210114
  Serious: Yes (Life-Threatening, Hospitalization, Other)
  Sender: FDA-Public Use
  Company Number: US-ACCORD-210577

PATIENT
  Age: 77 Year
  Sex: Male

DRUGS (6)
  1. DOXORUBICIN [Suspect]
     Active Substance: DOXORUBICIN
     Indication: HEPATOCELLULAR CARCINOMA
     Dosage: 3 WEEKS LATER FOR SECOND TACE TREATMENT (CONSISTING OF A 2:1 MIXTURE CONTAINING 20ML ETHIODIZED OIL
  2. CEFAZOLIN [Concomitant]
     Active Substance: CEFAZOLIN
     Route: 042
  3. DIPHENHYDRAMINE. [Concomitant]
     Active Substance: DIPHENHYDRAMINE
     Route: 042
  4. ONDANSETRON/DEXAMETHASONE [Concomitant]
     Dosage: STRENGTH: 16 MG/ 10 MG
     Route: 042
  5. MITOMYCIN. [Suspect]
     Active Substance: MITOMYCIN
     Indication: HEPATOCELLULAR CARCINOMA
     Dosage: FIRST TACE SESSION (CONSISTING OF A 2:1 MIXTURE CONTAINING 20ML ETHIODIZED OIL
  6. METRONIDAZOLE. [Concomitant]
     Active Substance: METRONIDAZOLE
     Route: 042

REACTIONS (6)
  - Hypoxia [Recovered/Resolved]
  - Off label use [Unknown]
  - Tachypnoea [Recovered/Resolved]
  - Chills [Recovered/Resolved]
  - Hypersensitivity [Recovered/Resolved]
  - Hypertension [Recovered/Resolved]
